FAERS Safety Report 18655532 (Version 1)
Quarter: 2020Q4

REPORT INFORMATION
  Report Type: Spontaneous
  Country: US (occurrence: US)
  Receive Date: 20201223
  Receipt Date: 20201223
  Transmission Date: 20210114
  Serious: Yes (Other)
  Sender: FDA-Public Use
  Company Number: US-MYLANLABS-2020M1103781

PATIENT
  Sex: Male

DRUGS (16)
  1. GUANFACINE. [Suspect]
     Active Substance: GUANFACINE
     Indication: TOURETTE^S DISORDER
     Dosage: 1 MILLIGRAM, QD...
     Route: 065
  2. PIMOZIDE. [Suspect]
     Active Substance: PIMOZIDE
     Indication: TOURETTE^S DISORDER
     Route: 065
  3. RISPERIDONE. [Suspect]
     Active Substance: RISPERIDONE
     Indication: TOURETTE^S DISORDER
     Route: 065
  4. CLONIDINE. [Suspect]
     Active Substance: CLONIDINE
     Indication: TOURETTE^S DISORDER
     Route: 065
  5. CLONAZEPAM. [Suspect]
     Active Substance: CLONAZEPAM
     Indication: TOURETTE^S DISORDER
     Route: 065
  6. ATORVASTATIN [Suspect]
     Active Substance: ATORVASTATIN
     Indication: TOURETTE^S DISORDER
     Dosage: 10 MILLIGRAM, QD...
     Route: 065
  7. PAROXETINE. [Suspect]
     Active Substance: PAROXETINE
     Indication: TOURETTE^S DISORDER
     Dosage: 20 MILLIGRAM, QD...
     Route: 065
  8. PAROXETINE. [Suspect]
     Active Substance: PAROXETINE
     Dosage: 60 MILLIGRAM, QD...
     Route: 065
  9. ARIPIPRAZOLE. [Suspect]
     Active Substance: ARIPIPRAZOLE
     Indication: TOURETTE^S DISORDER
     Dosage: 20 MILLIGRAM, QD
     Route: 065
  10. TOPIRAMATE. [Suspect]
     Active Substance: TOPIRAMATE
     Indication: TOURETTE^S DISORDER
     Route: 065
  11. GUANFACINE. [Suspect]
     Active Substance: GUANFACINE
     Dosage: 2 MILLIGRAM, QD...
     Route: 065
  12. AMANTADINE. [Suspect]
     Active Substance: AMANTADINE HYDROCHLORIDE
     Indication: TOURETTE^S DISORDER
     Dosage: 100 MILLIGRAM, TID....
     Route: 065
  13. OLANZAPINE. [Suspect]
     Active Substance: OLANZAPINE
     Indication: TOURETTE^S DISORDER
     Dosage: 20 MILLIGRAM, QD....
     Route: 065
  14. BENZTROPINE                        /00012901/ [Suspect]
     Active Substance: BENZTROPINE
     Indication: TOURETTE^S DISORDER
     Route: 065
  15. HALOPERIDOL. [Suspect]
     Active Substance: HALOPERIDOL
     Indication: TOURETTE^S DISORDER
     Route: 065
  16. PERGOLIDE [Suspect]
     Active Substance: PERGOLIDE
     Indication: TOURETTE^S DISORDER
     Route: 065

REACTIONS (9)
  - Peripheral swelling [Unknown]
  - Dystonia [Unknown]
  - Somnolence [Unknown]
  - Off label use [Unknown]
  - Dry mouth [Unknown]
  - Lethargy [Unknown]
  - Aggression [Unknown]
  - Drug ineffective [Unknown]
  - Hypotension [Unknown]
